FAERS Safety Report 5068971-0 (Version None)
Quarter: 2006Q3

REPORT INFORMATION
  Report Type: 
  Country: None (occurrence: None)
  Receive Date: 20060801
  Receipt Date: 20060801
  Transmission Date: 20061208
  Serious: Yes (Hospitalization)
  Sender: FDA-Public Use
  Company Number: None

PATIENT
  Age: 52 Year
  Sex: Male
  Weight: 68.9467 kg

DRUGS (11)
  1. ETANERCEPT   50MG/ML   IMMUNEX [Suspect]
     Indication: RHEUMATOID ARTHRITIS
     Dosage: 50 MG WEEKLY SQ
     Route: 058
     Dates: start: 20060103, end: 20060419
  2. CELECOXIB [Concomitant]
  3. ESOMEPRAZOLE MAGNESIUM [Concomitant]
  4. FLUTICAS 500/SALMETEROL [Concomitant]
  5. FUROSEMIDE [Concomitant]
  6. GLYBURIDE [Concomitant]
  7. HYDROXYZINE HCL [Concomitant]
  8. LISINOPRIL [Concomitant]
  9. METFORMIN HYDROCHLORIDE [Concomitant]
  10. METHOTREXATE NA [Concomitant]
  11. MONTELUKAST NA [Concomitant]

REACTIONS (13)
  - CELLULITIS [None]
  - CHILLS [None]
  - GLYCOSYLATED HAEMOGLOBIN INCREASED [None]
  - HAEMATOMA [None]
  - HYPOTENSION [None]
  - IMMUNOSUPPRESSION [None]
  - LIVER FUNCTION TEST ABNORMAL [None]
  - PYREXIA [None]
  - SEPSIS [None]
  - TACHYCARDIA [None]
  - TENDON RUPTURE [None]
  - THROMBOCYTOPENIA [None]
  - WALKING AID USER [None]
